FAERS Safety Report 22147620 (Version 2)
Quarter: 2023Q2

REPORT INFORMATION
  Report Type: Report from Study
  Country: CA (occurrence: CA)
  Receive Date: 20230328
  Receipt Date: 20230403
  Transmission Date: 20230721
  Serious: Yes (Other)
  Sender: FDA-Public Use
  Company Number: CA-JNJFOC-20230364911

PATIENT
  Sex: Female

DRUGS (1)
  1. REMICADE [Suspect]
     Active Substance: INFLIXIMAB
     Indication: Crohn^s disease
     Dosage: WANTS TO BE PUT ON HOLD UNTIL SHE HAS SURGERY DATE
     Route: 042
     Dates: start: 20150113

REACTIONS (1)
  - Breast cancer metastatic [Unknown]
